FAERS Safety Report 23167794 (Version 1)
Quarter: 2023Q4

REPORT INFORMATION
  Report Type: Spontaneous
  Country: TR (occurrence: TR)
  Receive Date: 20231109
  Receipt Date: 20231109
  Transmission Date: 20240110
  Serious: Yes (Hospitalization, Other)
  Sender: FDA-Public Use
  Company Number: TR-PAIPHARMA-2023-TR-000132

PATIENT
  Age: 65 Year
  Sex: Female

DRUGS (2)
  1. PREDNISOLONE [Suspect]
     Active Substance: PREDNISOLONE
     Indication: Rheumatoid arthritis
     Dosage: 7.5 MG DAILY
  2. HYDROXYCHLOROQUINE [Concomitant]
     Active Substance: HYDROXYCHLOROQUINE
     Dosage: 400 MG DAILY

REACTIONS (1)
  - Neuroendocrine carcinoma of the skin [Unknown]
